FAERS Safety Report 20973041 (Version 2)
Quarter: 2023Q2

REPORT INFORMATION
  Report Type: Spontaneous
  Country: ES (occurrence: ES)
  Receive Date: 20220617
  Receipt Date: 20230627
  Transmission Date: 20230721
  Serious: Yes (Other)
  Sender: FDA-Public Use
  Company Number: ES-TILLOMEDPR-2021-EPL-001258

PATIENT
  Age: 83 Year
  Sex: Female

DRUGS (1)
  1. BORTEZOMIB [Suspect]
     Active Substance: BORTEZOMIB
     Indication: Plasma cell myeloma
     Dosage: UNK
     Route: 065

REACTIONS (9)
  - Eyelid oedema [Recovering/Resolving]
  - Blepharitis [Recovering/Resolving]
  - Ocular toxicity [Recovering/Resolving]
  - Conjunctival hyperaemia [Recovering/Resolving]
  - Eye pruritus [Recovering/Resolving]
  - Erythema of eyelid [Recovering/Resolving]
  - Ocular discomfort [Recovering/Resolving]
  - Eye disorder [Recovering/Resolving]
  - Erythema [Recovering/Resolving]
